FAERS Safety Report 5230893-X (Version None)
Quarter: 2007Q1

REPORT INFORMATION
  Report Type: 
  Country: None (occurrence: None)
  Receive Date: 20070206
  Receipt Date: 20070131
  Transmission Date: 20070707
  Serious: Yes (Hospitalization)
  Sender: FDA-Public Use
  Company Number: GB-GLAXOSMITHKLINE-B0359790A

PATIENT
  Sex: Female

DRUGS (7)
  1. SEROXAT [Suspect]
     Route: 065
  2. DIAZEPAM [Concomitant]
     Route: 065
  3. HEMINEVRIN [Concomitant]
     Route: 065
  4. CO-PROXAMOL [Concomitant]
     Route: 065
  5. PHYLLOCONTIN [Concomitant]
     Route: 065
  6. ALCOHOL [Concomitant]
     Route: 065
  7. ZOPICLONE [Concomitant]
     Dosage: 7.5MG AT NIGHT
     Route: 065

REACTIONS (4)
  - DRUG WITHDRAWAL SYNDROME [None]
  - OVERDOSE [None]
  - SUICIDE ATTEMPT [None]
  - WEIGHT INCREASED [None]
